FAERS Safety Report 10019520 (Version 3)
Quarter: 2014Q2

REPORT INFORMATION
  Report Type: Spontaneous
  Country: GB (occurrence: GB)
  Receive Date: 20140318
  Receipt Date: 20140513
  Transmission Date: 20141212
  Serious: Yes (Hospitalization)
  Sender: FDA-Public Use
  Company Number: PHFR2014GB001038

PATIENT
  Age: 54 Year
  Sex: Female

DRUGS (3)
  1. CLOZARIL [Suspect]
     Indication: SCHIZOPHRENIA
     Dosage: UNK
     Route: 048
     Dates: start: 20080124
  2. HALOPERIDOL [Concomitant]
     Dosage: UNK UKN, UNK
  3. LORAZEPAM [Concomitant]
     Dosage: UNK UKN, UNK

REACTIONS (5)
  - Dementia [Unknown]
  - Delirium [Recovered/Resolved with Sequelae]
  - Schizophrenia [Recovering/Resolving]
  - General physical health deterioration [Unknown]
  - Mental disorder [Unknown]
